FAERS Safety Report 21862005 (Version 1)
Quarter: 2023Q1

REPORT INFORMATION
  Report Type: Spontaneous
  Country: US (occurrence: US)
  Receive Date: 20230113
  Receipt Date: 20230113
  Transmission Date: 20230418
  Serious: No
  Sender: FDA-Public Use
  Company Number: US-BEH-2023154074

PATIENT
  Sex: Male
  Weight: 33.56 kg

DRUGS (2)
  1. BERINERT [Suspect]
     Active Substance: HUMAN C1-ESTERASE INHIBITOR
     Indication: Hereditary angioedema
     Dosage: 600 INTERNATIONAL UNIT, PRN
     Route: 042
     Dates: start: 202211
  2. BERINERT [Suspect]
     Active Substance: HUMAN C1-ESTERASE INHIBITOR
     Indication: Hereditary angioedema
     Dosage: 600 INTERNATIONAL UNIT, PRN
     Route: 042
     Dates: start: 202211

REACTIONS (1)
  - Weight increased [Unknown]
